FAERS Safety Report 6214706-5 (Version None)
Quarter: 2009Q2

REPORT INFORMATION
  Report Type: 
  Country: None (occurrence: None)
  Receive Date: 20090602
  Receipt Date: 20090520
  Transmission Date: 20091009
  Serious: Yes (Death)
  Sender: FDA-Public Use
  Company Number: DAV-AE-ATE-09-003

PATIENT
  Age: 20 Year
  Sex: Female

DRUGS (3)
  1. ATENOLOL [Suspect]
  2. PILSICAINIDE [Concomitant]
  3. ASPIRIN [Concomitant]

REACTIONS (10)
  - CARDIO-RESPIRATORY ARREST [None]
  - CARDIOMYOPATHY [None]
  - DILATATION VENTRICULAR [None]
  - MYOCARDIAL FIBROSIS [None]
  - PULMONARY CONGESTION [None]
  - PULMONARY OEDEMA [None]
  - SELF-MEDICATION [None]
  - SKIN LACERATION [None]
  - TOXICOLOGIC TEST ABNORMAL [None]
  - TUBULOINTERSTITIAL NEPHRITIS [None]
